FAERS Safety Report 21310766 (Version 1)
Quarter: 2022Q3

REPORT INFORMATION
  Report Type: Spontaneous
  Country: IL (occurrence: IL)
  Receive Date: 20220909
  Receipt Date: 20220909
  Transmission Date: 20221026
  Serious: Yes (Hospitalization, Other)
  Sender: FDA-Public Use
  Company Number: IL-STRIDES ARCOLAB LIMITED-2022SP011383

PATIENT
  Age: 4 Decade
  Sex: Male

DRUGS (2)
  1. PREDNISOLONE [Suspect]
     Active Substance: PREDNISOLONE
     Indication: Gouty arthritis
     Dosage: 40 MILLIGRAM PER DAY
     Route: 065
  2. PREDNISOLONE [Suspect]
     Active Substance: PREDNISOLONE
     Dosage: UNK, DOSE WAS GRADUALLY TAPERED
     Route: 065

REACTIONS (15)
  - Congestive cardiomyopathy [Recovered/Resolved]
  - Steatohepatitis [Unknown]
  - Intentional product misuse [Unknown]
  - Cushing^s syndrome [Unknown]
  - Diabetes mellitus [Unknown]
  - Myopathy [Unknown]
  - Cataract [Unknown]
  - Pneumocystis jirovecii pneumonia [Unknown]
  - Cardiac failure [Recovered/Resolved]
  - Dyslipidaemia [Unknown]
  - Arteriosclerosis [Unknown]
  - Weight increased [Unknown]
  - Skin disorder [Unknown]
  - Hypertension [Unknown]
  - Osteoporosis [Unknown]
